FAERS Safety Report 10389037 (Version 1)
Quarter: 2014Q1

REPORT INFORMATION
  Report Type: Spontaneous
  Country: US (occurrence: None)
  Receive Date: 20140306
  Receipt Date: 20140306
  Transmission Date: 20141002
  Serious: Yes (Other)
  Sender: FDA-Public Use
  Company Number: 163-21880-13102599

PATIENT
  Age: 62 Year
  Sex: Male

DRUGS (15)
  1. REVLIMID (LENALIDOMIDE) (2.5 MILLIGRAM, CAPSULES) [Suspect]
     Indication: MYELODYSPLASTIC SYNDROME
     Dosage: 21 IN 21 D
     Route: 048
     Dates: start: 201211, end: 201309
  2. OXYCODONE [Concomitant]
  3. ARANESP (DARBEPOETIN ALFA) [Concomitant]
  4. PHOSLO (CALCIUM ACETATE) [Concomitant]
  5. NEULASTA (PEGFILGRASTIM) [Concomitant]
  6. PROTONIX (PANTOPRAZOLE) [Concomitant]
  7. CALCITROL [Concomitant]
  8. SPIRONOLACTONE [Concomitant]
  9. CRESTOR (ROSUVASTATIN) [Concomitant]
  10. TOPROL XL (METOPROLOL SUCCINATE) (100 MILLIGRAM) (METOPROLOL SUCCINATE) [Concomitant]
  11. EXJADE (DEFERASIROX) [Concomitant]
  12. VITAMIN D (ERGOCALCIFEROL) [Concomitant]
  13. FUROSEMIDE [Concomitant]
  14. LEVOTHYROXINE [Concomitant]
  15. MAG OX (MAGNESIUM OXIDE) [Concomitant]

REACTIONS (2)
  - Renal impairment [None]
  - Drug ineffective [None]
